FAERS Safety Report 16001170 (Version 1)
Quarter: 2019Q1

REPORT INFORMATION
  Report Type: Spontaneous
  Country: US (occurrence: US)
  Receive Date: 20190224
  Receipt Date: 20190224
  Transmission Date: 20190418
  Serious: Yes (Hospitalization, Other)
  Sender: FDA-Public Use
  Company Number: None

PATIENT
  Age: 49 Year
  Sex: Female
  Weight: 73.8 kg

DRUGS (2)
  1. DULOXETINE 20MG [Suspect]
     Active Substance: DULOXETINE
     Indication: NEUROTOXICITY
     Dosage: ?          QUANTITY:2 CAPSULE(S);?
     Route: 048
     Dates: start: 20190212, end: 20190221
  2. DULOXETINE 20MG [Suspect]
     Active Substance: DULOXETINE
     Indication: DEPRESSION
     Dosage: ?          QUANTITY:2 CAPSULE(S);?
     Route: 048
     Dates: start: 20190212, end: 20190221

REACTIONS (2)
  - Pain [None]
  - Withdrawal syndrome [None]

NARRATIVE: CASE EVENT DATE: 20190223
